FAERS Safety Report 23219924 (Version 3)
Quarter: 2024Q3

REPORT INFORMATION
  Report Type: Report from Study
  Country: CA (occurrence: CA)
  Receive Date: 20231122
  Receipt Date: 20240705
  Transmission Date: 20241017
  Serious: Yes (Hospitalization)
  Sender: JOHNSON AND JOHNSON
  Company Number: CA-JNJFOC-20231139860

PATIENT
  Age: 66 Year
  Sex: Male

DRUGS (1)
  1. SIMPONI [Suspect]
     Active Substance: GOLIMUMAB
     Indication: Psoriatic arthropathy
     Route: 058

REACTIONS (2)
  - Localised infection [Recovering/Resolving]
  - Arthritis [Unknown]

NARRATIVE: CASE EVENT DATE: 20230101
